FAERS Safety Report 25277351 (Version 1)
Quarter: 2025Q2

REPORT INFORMATION
  Report Type: Spontaneous
  Country: JP (occurrence: JP)
  Receive Date: 20250507
  Receipt Date: 20250507
  Transmission Date: 20250716
  Serious: Yes (Other)
  Sender: GLAXOSMITHKLINE
  Company Number: JP-GSK-JP2025JPN052130

PATIENT

DRUGS (8)
  1. FLUTICASONE FUROATE\VILANTEROL TRIFENATATE [Suspect]
     Active Substance: FLUTICASONE FUROATE\VILANTEROL TRIFENATATE
  2. BENRALIZUMAB [Concomitant]
     Active Substance: BENRALIZUMAB
     Dosage: UNK, Q8W
  3. BENRALIZUMAB [Concomitant]
     Active Substance: BENRALIZUMAB
  4. BENRALIZUMAB [Concomitant]
     Active Substance: BENRALIZUMAB
     Dosage: UNK, Q12W
  5. BENRALIZUMAB [Concomitant]
     Active Substance: BENRALIZUMAB
  6. BENRALIZUMAB [Concomitant]
     Active Substance: BENRALIZUMAB
  7. BENRALIZUMAB [Concomitant]
     Active Substance: BENRALIZUMAB
  8. PREDNISOLONE [Concomitant]
     Active Substance: PREDNISOLONE
     Indication: Asthma
     Dosage: 5 MG, QD

REACTIONS (8)
  - Bronchopulmonary aspergillosis allergic [Unknown]
  - Pneumonia [Unknown]
  - Pneumonia aspiration [Unknown]
  - Atelectasis [Unknown]
  - Bronchial secretion retention [Unknown]
  - Asthma [Unknown]
  - Hiatus hernia [Unknown]
  - Mobility decreased [Unknown]
